FAERS Safety Report 17220560 (Version 4)
Quarter: 2020Q1

REPORT INFORMATION
  Report Type: Spontaneous
  Country: IT (occurrence: IT)
  Receive Date: 20191231
  Receipt Date: 20200204
  Transmission Date: 20200409
  Serious: Yes (Hospitalization)
  Sender: FDA-Public Use
  Company Number: IT-MYLANLABS-2019M1132025

PATIENT
  Age: 40 Year
  Sex: Female

DRUGS (5)
  1. ARIPIPRAZOLE. [Suspect]
     Active Substance: ARIPIPRAZOLE
     Dosage: 20 MILLIGRAM, QD
     Route: 065
  2. ARIPIPRAZOLE. [Suspect]
     Active Substance: ARIPIPRAZOLE
     Dosage: 20 MILLIGRAM, QD
     Route: 065
  3. ARIPIPRAZOLE. [Suspect]
     Active Substance: ARIPIPRAZOLE
     Indication: BIPOLAR I DISORDER
     Dosage: 30 MILLIGRAM, QD
     Route: 065
  4. VALPROIC ACID. [Concomitant]
     Active Substance: VALPROIC ACID
     Indication: PRODUCT USED FOR UNKNOWN INDICATION
     Dosage: UNK UNK
     Route: 065
  5. ARIPIPRAZOLE. [Suspect]
     Active Substance: ARIPIPRAZOLE
     Dosage: 15 MILLIGRAM, QD
     Route: 065

REACTIONS (6)
  - Urine amphetamine positive [Recovering/Resolving]
  - Symptom recurrence [Recovering/Resolving]
  - Drug screen false positive [Unknown]
  - Drug ineffective [Recovered/Resolved]
  - Condition aggravated [Recovered/Resolved]
  - Antipsychotic drug level above therapeutic [Recovering/Resolving]
